FAERS Safety Report 5814754-0 (Version None)
Quarter: 2008Q3

REPORT INFORMATION
  Report Type: 
  Country: None (occurrence: None)
  Receive Date: 20080715
  Receipt Date: 20080704
  Transmission Date: 20090109
  Serious: Yes (Other)
  Sender: FDA-Public Use
  Company Number: 2008AP000635

PATIENT
  Age: 36 Year
  Sex: Female

DRUGS (11)
  1. PAROXETINE HCL [Suspect]
     Dosage: SEE IMAGE
     Route: 048
     Dates: start: 19970801, end: 20030901
  2. PAROXETINE HCL [Suspect]
     Dosage: SEE IMAGE
     Route: 048
     Dates: end: 20031001
  3. PAROXETINE HCL [Suspect]
     Dosage: SEE IMAGE
     Route: 048
     Dates: start: 20030901
  4. PAROXETINE HCL [Suspect]
     Dosage: SEE IMAGE
     Route: 048
     Dates: start: 20031001
  5. PAROXETINE HCL [Suspect]
     Dosage: SEE IMAGE
     Route: 048
     Dates: start: 20031001
  6. PAROXETINE HCL [Suspect]
     Dosage: SEE IMAGE
     Route: 048
     Dates: start: 20050407
  7. LORAZEPAM [Concomitant]
  8. FLUOXETINE HCL [Concomitant]
  9. DAPSONE [Concomitant]
  10. TRIAMCINOLONE [Concomitant]
  11. INSULIN (INSULIN) [Concomitant]

REACTIONS (76)
  - AFFECT LABILITY [None]
  - AGGRESSION [None]
  - AGITATION [None]
  - ALOPECIA AREATA [None]
  - ALTERED VISUAL DEPTH PERCEPTION [None]
  - ANAEMIA [None]
  - ANGER [None]
  - ANXIETY [None]
  - AUTONOMIC NEUROPATHY [None]
  - BEHCET'S SYNDROME [None]
  - BIPOLAR DISORDER [None]
  - BORDERLINE PERSONALITY DISORDER [None]
  - COELIAC DISEASE [None]
  - COMPLETED SUICIDE [None]
  - CONDITION AGGRAVATED [None]
  - CONFUSIONAL STATE [None]
  - CRYING [None]
  - DEPRESSED MOOD [None]
  - DEPRESSION [None]
  - DERMATILLOMANIA [None]
  - DERMATITIS HERPETIFORMIS [None]
  - DIABETES MELLITUS [None]
  - DIABETES MELLITUS INADEQUATE CONTROL [None]
  - DIABETIC RETINOPATHY [None]
  - DIARRHOEA [None]
  - DISSOCIATION [None]
  - DISTURBANCE IN ATTENTION [None]
  - DIZZINESS [None]
  - DRUG WITHDRAWAL SYNDROME [None]
  - ELECTRIC SHOCK [None]
  - FAMILY STRESS [None]
  - FATIGUE [None]
  - FLAT AFFECT [None]
  - GENITAL ULCERATION [None]
  - HEADACHE [None]
  - HOMICIDAL IDEATION [None]
  - HYPERHIDROSIS [None]
  - INFLUENZA [None]
  - INFLUENZA LIKE ILLNESS [None]
  - INJURY [None]
  - INTENTIONAL OVERDOSE [None]
  - INTENTIONAL SELF-INJURY [None]
  - IRRITABLE BOWEL SYNDROME [None]
  - LETHARGY [None]
  - LOSS OF EMPLOYMENT [None]
  - LOSS OF LIBIDO [None]
  - MACULOPATHY [None]
  - MEMORY IMPAIRMENT [None]
  - MOOD SWINGS [None]
  - MOUTH ULCERATION [None]
  - MUSCLE SPASMS [None]
  - NASOPHARYNGITIS [None]
  - NAUSEA [None]
  - NIGHTMARE [None]
  - OVERDOSE [None]
  - PALPITATIONS [None]
  - PANIC ATTACK [None]
  - PARAESTHESIA [None]
  - PARANOIA [None]
  - PARENT-CHILD PROBLEM [None]
  - PERSONALITY CHANGE [None]
  - PRURITUS [None]
  - RETINOPATHY [None]
  - SCAR [None]
  - SKIN INFECTION [None]
  - SKIN LESION [None]
  - SLEEP DISORDER [None]
  - STRESS [None]
  - SUICIDAL IDEATION [None]
  - SUICIDE ATTEMPT [None]
  - TREATMENT NONCOMPLIANCE [None]
  - TREMOR [None]
  - VISION BLURRED [None]
  - VISUAL IMPAIRMENT [None]
  - WEIGHT DECREASED [None]
  - WITHDRAWAL SYNDROME [None]
